FAERS Safety Report 9180946 (Version 1)
Quarter: 2013Q1

REPORT INFORMATION
  Report Type: Spontaneous
  Country: PH (occurrence: PH)
  Receive Date: 20130322
  Receipt Date: 20130322
  Transmission Date: 20140127
  Serious: Yes (Other)
  Sender: FDA-Public Use
  Company Number: PHHY2013PH022855

PATIENT
  Age: 55 Year
  Sex: Male
  Weight: 54.42 kg

DRUGS (5)
  1. GALVUS MET [Suspect]
     Indication: TYPE 2 DIABETES MELLITUS
     Dosage: TWICE DAILY
     Route: 048
     Dates: start: 20130103
  2. DIOVAN [Suspect]
     Indication: HYPERTENSION
     Dosage: 80 MG, QD
     Route: 048
     Dates: start: 20130103
  3. ALLOPURINOL [Suspect]
     Dosage: UNK UKN, UNK
  4. CARVEDILOL [Concomitant]
     Dosage: QD
  5. FENOFIBRATE [Concomitant]
     Dosage: QD

REACTIONS (5)
  - Swelling face [Unknown]
  - Rash [Recovered/Resolved]
  - Pruritus [Unknown]
  - Skin lesion [Unknown]
  - Erythema [Unknown]
